FAERS Safety Report 16649980 (Version 1)
Quarter: 2019Q3

REPORT INFORMATION
  Report Type: Spontaneous
  Country: US (occurrence: US)
  Receive Date: 20190731
  Receipt Date: 20190731
  Transmission Date: 20191004
  Serious: No
  Sender: FDA-Public Use
  Company Number: US-JIANGSU HENGRUI MEDICINE CO., LTD.-2071517

PATIENT
  Age: 29 Year
  Sex: Male

DRUGS (8)
  1. PREDNISONE. [Suspect]
     Active Substance: PREDNISONE
  2. DOXORUBICIN [Suspect]
     Active Substance: DOXORUBICIN
  3. VINCRISTINE [Suspect]
     Active Substance: VINCRISTINE
  4. METHOTREXATE. [Suspect]
     Active Substance: METHOTREXATE
  5. ETOPOSIDE. [Suspect]
     Active Substance: ETOPOSIDE
  6. RITUXIMAB. [Suspect]
     Active Substance: RITUXIMAB
  7. CYCLOPHOSPHAMIDE FOR INJECTION USP, 500 MG, 1 G AND 2 G PER SINGLE-DOS [Suspect]
     Active Substance: CYCLOPHOSPHAMIDE
     Indication: BURKITT^S LYMPHOMA
  8. TACROLIMUS. [Concomitant]
     Active Substance: TACROLIMUS

REACTIONS (1)
  - Neoplasm recurrence [Not Recovered/Not Resolved]
